FAERS Safety Report 12333668 (Version 2)
Quarter: 2016Q2

REPORT INFORMATION
  Report Type: Spontaneous
  Country: US (occurrence: US)
  Receive Date: 20160504
  Receipt Date: 20160511
  Transmission Date: 20160815
  Serious: No
  Sender: FDA-Public Use
  Company Number: US-GLAXOSMITHKLINE-US2016061142

PATIENT
  Age: 49 Year
  Sex: Female

DRUGS (2)
  1. FLONASE [Suspect]
     Active Substance: FLUTICASONE PROPIONATE
     Indication: DUST ALLERGY
     Dosage: UNK
     Dates: start: 20160101, end: 20160331
  2. FLONASE [Suspect]
     Active Substance: FLUTICASONE PROPIONATE
     Indication: ALLERGY TO ANIMAL

REACTIONS (1)
  - Drug ineffective [Unknown]
